FAERS Safety Report 9491214 (Version 1)
Quarter: 2013Q1

REPORT INFORMATION
  Report Type: Not Available
  Country: US (occurrence: US)
  Receive Date: 20120619
  Receipt Date: 20120619
  Transmission Date: 20140127
  Serious: No
  Sender: FDA-Public Use
  Company Number: US-LUNDBECK-DKLU1077494

PATIENT
  Sex: Male

DRUGS (3)
  1. SABRIL (FOR ORAL SOLUTION) [Suspect]
     Indication: INFANTILE SPASMS
     Dosage: 2000 MG
     Route: 048
     Dates: start: 20120124
  2. SABRIL     (TABLET) [Suspect]
     Indication: INFANTILE SPASMS
     Dosage: 2000 MG
     Route: 048
     Dates: start: 2012
  3. KEPPRA [Concomitant]
     Indication: PRODUCT USED FOR UNKNOWN INDICATION

REACTIONS (3)
  - Dyspepsia [Unknown]
  - Retching [Unknown]
  - Decreased appetite [Unknown]
